FAERS Safety Report 25737410 (Version 1)
Quarter: 2025Q3

REPORT INFORMATION
  Report Type: Spontaneous
  Country: AU (occurrence: AU)
  Receive Date: 20250828
  Receipt Date: 20250828
  Transmission Date: 20251020
  Serious: Yes (Other)
  Sender: ANI
  Company Number: AU-ANIPHARMA-2025-AU-000122

PATIENT
  Age: 80 Year
  Sex: Female

DRUGS (1)
  1. CANDESARTAN CILEXETIL AND HYDROCHLOROTHIAZIDE [Suspect]
     Active Substance: CANDESARTAN CILEXETIL\HYDROCHLOROTHIAZIDE
     Indication: Product used for unknown indication

REACTIONS (9)
  - Delirium [Unknown]
  - Facial paralysis [Unknown]
  - Chest pain [Unknown]
  - Confusional state [Unknown]
  - Muscular weakness [Unknown]
  - Dizziness [Unknown]
  - Hyponatraemia [Recovered/Resolved]
  - Hypersensitivity [Unknown]
  - Pyrexia [Unknown]

NARRATIVE: CASE EVENT DATE: 20250619
